FAERS Safety Report 15793599 (Version 1)
Quarter: 2019Q1

REPORT INFORMATION
  Report Type: Spontaneous
  Country: US (occurrence: US)
  Receive Date: 20190107
  Receipt Date: 20190107
  Transmission Date: 20190417
  Serious: Yes (Death, Life-Threatening, Other)
  Sender: FDA-Public Use
  Company Number: US-009507513-1812USA006871

PATIENT
  Age: 79 Year
  Sex: Male

DRUGS (1)
  1. KEYTRUDA [Suspect]
     Active Substance: PEMBROLIZUMAB
     Indication: METASTATIC MALIGNANT MELANOMA
     Dosage: UNK, ONCE
     Route: 042
     Dates: start: 20181016, end: 201810

REACTIONS (3)
  - Extraocular muscle paresis [Unknown]
  - Death [Fatal]
  - Myositis [Unknown]

NARRATIVE: CASE EVENT DATE: 2018
